FAERS Safety Report 7951782-3 (Version None)
Quarter: 2011Q4

REPORT INFORMATION
  Report Type: 
  Country: None (occurrence: None)
  Receive Date: 20111130
  Receipt Date: 20111130
  Transmission Date: 20120403
  Serious: Yes (Hospitalization)
  Sender: FDA-Public Use
  Company Number: None

PATIENT
  Sex: Female
  Weight: 60.78 kg

DRUGS (18)
  1. CENTRUM [Concomitant]
  2. COUMADIN [Concomitant]
  3. SYNTHROID [Concomitant]
  4. PHENERGAN [Concomitant]
  5. ARIXTRA [Concomitant]
  6. LIPITOR [Concomitant]
  7. PEPCID [Concomitant]
  8. AMOXICILLIN [Concomitant]
  9. CIPROFLOXACIN [Concomitant]
  10. MAGNESIUM SULFATE [Concomitant]
  11. FISH OIL [Concomitant]
  12. OSCAL [Concomitant]
  13. TPN STANDARD ADULT [Concomitant]
  14. CARBOPLATIN [Suspect]
     Dosage: 510 MG
     Dates: end: 20111101
  15. TAXOL [Suspect]
     Dosage: 270 MG
     Dates: end: 20111108
  16. MIRALAX [Concomitant]
  17. NEXIUM [Concomitant]
  18. POTASSIUM ACETATE [Concomitant]

REACTIONS (2)
  - INTESTINAL OBSTRUCTION [None]
  - URINARY TRACT INFECTION [None]
